FAERS Safety Report 10747021 (Version 2)
Quarter: 2015Q1

REPORT INFORMATION
  Report Type: Report from Study
  Country: US (occurrence: US)
  Receive Date: 20150129
  Receipt Date: 20150210
  Transmission Date: 20150721
  Serious: Yes (Hospitalization)
  Sender: FDA-Public Use
  Company Number: US-BEH-2015048122

PATIENT
  Age: 57 Year
  Sex: Female

DRUGS (6)
  1. LOMOTIL [Concomitant]
     Active Substance: ATROPINE SULFATE\DIPHENOXYLATE HYDROCHLORIDE
  2. CARAFATE [Concomitant]
     Active Substance: SUCRALFATE
  3. PREDNISONE. [Concomitant]
     Active Substance: PREDNISONE
  4. BENTYL [Concomitant]
     Active Substance: DICYCLOMINE HYDROCHLORIDE
  5. PROTONIX [Concomitant]
     Active Substance: PANTOPRAZOLE SODIUM
  6. ZEMAIRA [Suspect]
     Active Substance: .ALPHA.1-PROTEINASE INHIBITOR HUMAN

REACTIONS (1)
  - Haematochezia [Unknown]

NARRATIVE: CASE EVENT DATE: 20110812
